FAERS Safety Report 16052197 (Version 2)
Quarter: 2019Q2

REPORT INFORMATION
  Report Type: Report from Study
  Country: US (occurrence: US)
  Receive Date: 20190308
  Receipt Date: 20190417
  Transmission Date: 20190711
  Serious: Yes (Death)
  Sender: FDA-Public Use
  Company Number: US-TAIHO ONCOLOGY  INC-EU-2019-00623

PATIENT
  Age: 71 Year
  Sex: Male
  Weight: 64 kg

DRUGS (5)
  1. LONSURF [Suspect]
     Active Substance: TIPIRACIL HYDROCHLORIDE\TRIFLURIDINE
     Indication: COLON CANCER METASTATIC
     Dosage: PATIENT TOOK LONSURF FOR 5 DAYS AND DIED SIX DAYS LATER.
     Route: 048
     Dates: start: 20190215
  2. LIORESAL [Concomitant]
     Active Substance: BACLOFEN
     Route: 048
  3. VITAMIN D3 [Concomitant]
     Active Substance: CHOLECALCIFEROL
     Route: 048
  4. SENOKOT [Concomitant]
     Active Substance: SENNOSIDES
     Indication: CONSTIPATION
     Route: 048
  5. VITAMIN B12 [Concomitant]
     Active Substance: CYANOCOBALAMIN
     Dosage: 3 TIMES A WEEK
     Route: 048

REACTIONS (1)
  - Colorectal cancer metastatic [Fatal]

NARRATIVE: CASE EVENT DATE: 20190227
